FAERS Safety Report 5932057-0 (Version None)
Quarter: 2008Q4

REPORT INFORMATION
  Report Type: 
  Country: None (occurrence: None)
  Receive Date: 20081027
  Receipt Date: 20081015
  Transmission Date: 20090506
  Serious: Yes (Hospitalization)
  Sender: FDA-Public Use
  Company Number: JP-PFIZER INC-2008088715

PATIENT
  Age: 63 Year
  Sex: Male

DRUGS (2)
  1. NIFEDIPINE [Suspect]
     Route: 048
  2. DILTIAZEM HYDROCHLORIDE [Suspect]
     Indication: HYPERTENSION
     Route: 048

REACTIONS (1)
  - SHOCK [None]
